FAERS Safety Report 5811210-0 (Version None)
Quarter: 2008Q3

REPORT INFORMATION
  Report Type: 
  Country: None (occurrence: None)
  Receive Date: 20080716
  Receipt Date: 20080714
  Transmission Date: 20090109
  Serious: Yes (Death)
  Sender: FDA-Public Use
  Company Number: IT-BRISTOL-MYERS SQUIBB COMPANY-14262273

PATIENT
  Sex: Male

DRUGS (5)
  1. CISPLATIN [Suspect]
     Indication: GASTRIC CANCER
     Dosage: THERAPY START DATE IS UNKNOWN.
     Route: 042
     Dates: end: 20080311
  2. IRINOTECAN HCL [Suspect]
     Indication: GASTRIC CANCER
     Route: 042
     Dates: start: 20071221
  3. FLUOROURACIL [Suspect]
     Indication: GASTRIC CANCER
     Dosage: ALSO RECEIVED IV FLUOROURACIL BOLUS 400MG/M2 EVERY 2 WEEKS
     Route: 042
     Dates: start: 20071221
  4. FOLINIC ACID [Suspect]
     Indication: GASTRIC CANCER
     Route: 042
     Dates: start: 20071221
  5. DOCETAXEL [Suspect]
     Indication: GASTRIC CANCER
     Dosage: THERAPY START DATE UNKNOWN
     Route: 042
     Dates: end: 20080311

REACTIONS (1)
  - DEATH [None]
